FAERS Safety Report 12239006 (Version 2)
Quarter: 2016Q2

REPORT INFORMATION
  Report Type: Report from Study
  Country: BR (occurrence: BR)
  Receive Date: 20160405
  Receipt Date: 20160628
  Transmission Date: 20160815
  Serious: Yes (Other)
  Sender: FDA-Public Use
  Company Number: BR-ABBVIE-16K-020-1592226-00

PATIENT
  Age: 19 Year
  Sex: Male
  Weight: 53 kg

DRUGS (8)
  1. HUMIRA [Suspect]
     Active Substance: ADALIMUMAB
     Route: 058
     Dates: start: 20151022
  2. PANTOPRAZOLE [Concomitant]
     Active Substance: PANTOPRAZOLE SODIUM
     Indication: PROPHYLAXIS
     Route: 048
     Dates: start: 201409
  3. PANTOPRAZOLE [Concomitant]
     Active Substance: PANTOPRAZOLE SODIUM
     Indication: GASTRIC DISORDER
  4. DUSPATALIN [Concomitant]
     Active Substance: MEBEVERINE HYDROCHLORIDE
     Indication: CROHN^S DISEASE
     Route: 048
     Dates: start: 201409
  5. HUMIRA [Suspect]
     Active Substance: ADALIMUMAB
     Indication: CROHN^S DISEASE
     Route: 058
     Dates: start: 20140911, end: 20140911
  6. HUMIRA [Suspect]
     Active Substance: ADALIMUMAB
     Route: 058
     Dates: start: 201409, end: 201409
  7. HUMIRA [Suspect]
     Active Substance: ADALIMUMAB
     Route: 058
  8. SIGMATRIOL [Concomitant]
     Active Substance: CALCITRIOL
     Indication: VITAMIN SUPPLEMENTATION
     Route: 048
     Dates: start: 201409

REACTIONS (6)
  - Abscess [Unknown]
  - Crohn^s disease [Recovered/Resolved]
  - Klebsiella infection [Unknown]
  - Osteomyelitis [Recovering/Resolving]
  - Acne [Unknown]
  - Pathogen resistance [Unknown]

NARRATIVE: CASE EVENT DATE: 2016
